FAERS Safety Report 15506743 (Version 1)
Quarter: 2018Q4

REPORT INFORMATION
  Report Type: Spontaneous
  Country: FR (occurrence: FR)
  Receive Date: 20181016
  Receipt Date: 20181016
  Transmission Date: 20190205
  Serious: Yes (Hospitalization)
  Sender: FDA-Public Use
  Company Number: PHHY2018FR121312

PATIENT
  Age: 69 Year
  Sex: Female
  Weight: 73.9 kg

DRUGS (2)
  1. ROVAMYCINE [Suspect]
     Active Substance: SPIRAMYCIN
     Indication: PNEUMONIA MYCOPLASMAL
     Dosage: 4.5 MIU, QD
     Route: 048
     Dates: start: 20180803, end: 20180821
  2. CLARITHROMYCIN. [Suspect]
     Active Substance: CLARITHROMYCIN
     Indication: PYREXIA
     Dosage: 1 DF, QD
     Route: 048
     Dates: start: 20180721, end: 20180724

REACTIONS (1)
  - Clostridium difficile colitis [Recovered/Resolved]

NARRATIVE: CASE EVENT DATE: 20180902
